FAERS Safety Report 12758578 (Version 2)
Quarter: 2016Q4

REPORT INFORMATION
  Report Type: Spontaneous
  Country: US (occurrence: US)
  Receive Date: 20160919
  Receipt Date: 20161021
  Transmission Date: 20170207
  Serious: No
  Sender: FDA-Public Use
  Company Number: US-BAYER-2016-177845

PATIENT
  Age: 66 Year
  Sex: Female
  Weight: 95.24 kg

DRUGS (1)
  1. ALEVE [Suspect]
     Active Substance: NAPROXEN SODIUM
     Indication: PAIN
     Dosage: 2 DF, QD
     Route: 048
     Dates: start: 2016

REACTIONS (3)
  - Product use issue [None]
  - Wrong technique in product usage process [None]
  - Intentional device misuse [Unknown]

NARRATIVE: CASE EVENT DATE: 2016
